FAERS Safety Report 8508518-7 (Version None)
Quarter: 2012Q3

REPORT INFORMATION
  Report Type: 
  Country: None (occurrence: None)
  Receive Date: 20120703
  Receipt Date: 20120619
  Transmission Date: 20120928
  Serious: Yes (Other)
  Sender: FDA-Public Use
  Company Number: 2012-316

PATIENT
  Age: 49 Year
  Sex: Female

DRUGS (1)
  1. ELESTRIN [Suspect]
     Indication: HOT FLUSH
     Dosage: PUMP, QD, TOPICAL
     Route: 061
     Dates: start: 20111001

REACTIONS (2)
  - HOT FLUSH [None]
  - THERMAL BURN [None]
